FAERS Safety Report 4882076-0 (Version None)
Quarter: 2006Q1

REPORT INFORMATION
  Report Type: 
  Country: None (occurrence: None)
  Receive Date: 20060117
  Receipt Date: 20050105
  Transmission Date: 20060701
  Serious: Yes (Death, Hospitalization, Disabling)
  Sender: FDA-Public Use
  Company Number: US-MERCK-0501USA00602

PATIENT
  Age: 52 Year
  Sex: Male
  Weight: 159 kg

DRUGS (8)
  1. VIOXX [Suspect]
     Indication: BACK PAIN
     Route: 048
     Dates: start: 20000301, end: 20021007
  2. VIOXX [Suspect]
     Route: 048
     Dates: start: 20000301, end: 20021007
  3. VIOXX [Suspect]
     Route: 048
     Dates: start: 20000301, end: 20021007
  4. VIOXX [Suspect]
     Route: 048
     Dates: start: 20000301, end: 20021007
  5. VIOXX [Suspect]
     Indication: ARTHRALGIA
     Route: 048
     Dates: start: 20000301, end: 20021007
  6. VIOXX [Suspect]
     Route: 048
     Dates: start: 20000301, end: 20021007
  7. VIOXX [Suspect]
     Route: 048
     Dates: start: 20000301, end: 20021007
  8. VIOXX [Suspect]
     Route: 048
     Dates: start: 20000301, end: 20021007

REACTIONS (12)
  - ARTHRALGIA [None]
  - CARDIAC ARREST [None]
  - CHEST PAIN [None]
  - CONSTIPATION [None]
  - GASTROOESOPHAGEAL REFLUX DISEASE [None]
  - HAEMORRHOIDAL HAEMORRHAGE [None]
  - MUSCULOSKELETAL CHEST PAIN [None]
  - OBESITY [None]
  - OVERDOSE [None]
  - SLEEP DISORDER [None]
  - SPINAL COLUMN STENOSIS [None]
  - SUDDEN DEATH [None]
